FAERS Safety Report 15359569 (Version 5)
Quarter: 2018Q4

REPORT INFORMATION
  Report Type: Spontaneous
  Country: US (occurrence: US)
  Receive Date: 20180907
  Receipt Date: 20181010
  Transmission Date: 20190204
  Serious: No
  Sender: FDA-Public Use
  Company Number: US-TEVA-2018-US-952419

PATIENT
  Sex: Female

DRUGS (4)
  1. CLONIDINE ACTAVIS [Suspect]
     Active Substance: CLONIDINE
     Indication: BLOOD PRESSURE MEASUREMENT
     Dosage: FREQUENCY: 1 WEEK
     Route: 062
     Dates: end: 201808
  2. MYRBETRIQ [Concomitant]
     Active Substance: MIRABEGRON
     Indication: POLLAKIURIA
     Dosage: FREQUENCY: 1; DURATION : 5 YEARS
     Route: 048
  3. CLONIDINE MYLAN [Suspect]
     Active Substance: CLONIDINE
     Dosage: FREQUENCY: 1 WEEK
     Route: 062
     Dates: start: 20180828, end: 20180904
  4. MIRTAZAPINE. [Concomitant]
     Active Substance: MIRTAZAPINE
     Indication: ANTIDEPRESSANT THERAPY
     Dosage: FREQUENCY: 1; DURATION : 8 MONTHS
     Route: 048

REACTIONS (1)
  - Blood pressure increased [Unknown]
